FAERS Safety Report 9260104 (Version 1)
Quarter: 2013Q2

REPORT INFORMATION
  Report Type: Report from Study
  Country: CA (occurrence: CA)
  Receive Date: 20130429
  Receipt Date: 20130429
  Transmission Date: 20140414
  Serious: Yes (Other)
  Sender: FDA-Public Use
  Company Number: CA-JNJFOC-20130413589

PATIENT
  Age: 68 Year
  Sex: Male
  Weight: 56 kg

DRUGS (6)
  1. REMICADE [Suspect]
     Indication: COLITIS ULCERATIVE
     Route: 042
     Dates: start: 20130413
  2. REMICADE [Suspect]
     Indication: COLITIS ULCERATIVE
     Route: 042
     Dates: start: 20130221
  3. PREDNISONE [Concomitant]
     Route: 065
  4. FLOMAX [Concomitant]
     Route: 065
  5. AVODART [Concomitant]
     Route: 065
  6. MULTIVITAMINS [Concomitant]
     Route: 065

REACTIONS (1)
  - Urinary retention [Unknown]
